FAERS Safety Report 10151807 (Version 2)
Quarter: 2014Q2

REPORT INFORMATION
  Report Type: Spontaneous
  Country: FR (occurrence: FR)
  Receive Date: 20140505
  Receipt Date: 20140513
  Transmission Date: 20141212
  Serious: Yes (Life-Threatening, Hospitalization)
  Sender: FDA-Public Use
  Company Number: FR-BRISTOL-MYERS SQUIBB COMPANY-20675948

PATIENT
  Age: 23 Year
  Sex: Female

DRUGS (7)
  1. COUMADINE [Suspect]
     Dosage: 20DF= 20 TABLETS.
     Route: 048
     Dates: start: 20140313
  2. DIAZEPAM [Suspect]
     Route: 048
     Dates: start: 20140313
  3. RISPERIDONE [Suspect]
     Route: 048
     Dates: start: 20140313
  4. ZOLPIDEM [Suspect]
     Route: 048
     Dates: start: 20140313
  5. LOXAPINE [Suspect]
     Route: 048
     Dates: start: 20140313
  6. ASPIRIN [Suspect]
     Route: 048
     Dates: start: 20140313
  7. FLUOXETINE [Suspect]
     Route: 048
     Dates: start: 20140313

REACTIONS (5)
  - Rhabdomyolysis [Recovering/Resolving]
  - Liver injury [Recovering/Resolving]
  - Prothrombin time shortened [Recovered/Resolved]
  - Coma [Recovered/Resolved]
  - Intentional overdose [Unknown]
